FAERS Safety Report 25418093 (Version 1)
Quarter: 2025Q2

REPORT INFORMATION
  Report Type: Spontaneous
  Country: US (occurrence: None)
  Receive Date: 20250609
  Receipt Date: 20250609
  Transmission Date: 20250716
  Serious: Yes (Hospitalization)
  Sender: FDA-CTU
  Company Number: None

PATIENT
  Age: 86 Year
  Sex: Male
  Weight: 84 kg

DRUGS (1)
  1. CEFEPIME [Suspect]
     Active Substance: CEFEPIME HYDROCHLORIDE
     Indication: Otitis externa
     Dosage: FREQUENCY : 3 TIMES A DAY;?
     Route: 042
     Dates: start: 20250425, end: 20250518

REACTIONS (4)
  - Rash erythematous [None]
  - Rash pruritic [None]
  - Infusion related hypersensitivity reaction [None]
  - Catheter site rash [None]

NARRATIVE: CASE EVENT DATE: 20250516
